FAERS Safety Report 18392849 (Version 1)
Quarter: 2020Q4

REPORT INFORMATION
  Report Type: Spontaneous
  Country: FR (occurrence: FR)
  Receive Date: 20201016
  Receipt Date: 20201016
  Transmission Date: 20210114
  Serious: Yes (Other)
  Sender: FDA-Public Use
  Company Number: FR-SA-2020SA284921

PATIENT

DRUGS (3)
  1. CORTANCYL [Suspect]
     Active Substance: PREDNISONE
     Dosage: UNK
     Dates: start: 2015
  2. METHOTREXATE. [Suspect]
     Active Substance: METHOTREXATE
     Dosage: UNK
     Dates: start: 2015
  3. KEVZARA [Suspect]
     Active Substance: SARILUMAB

REACTIONS (2)
  - Transaminases increased [Unknown]
  - Hepatitis [Unknown]
